FAERS Safety Report 25068038 (Version 1)
Quarter: 2025Q1

REPORT INFORMATION
  Report Type: Spontaneous
  Country: DE (occurrence: DE)
  Receive Date: 20250312
  Receipt Date: 20250312
  Transmission Date: 20250408
  Serious: Yes (Life-Threatening, Hospitalization, Disabling, Other)
  Sender: MYLAN
  Company Number: DE-MYLANLABS-2025M1018511

PATIENT
  Sex: Male

DRUGS (51)
  1. VALPROIC ACID [Suspect]
     Active Substance: VALPROIC ACID
     Indication: Partial seizures
     Dosage: 4000 MILLIGRAM, QD
  2. VALPROIC ACID [Suspect]
     Active Substance: VALPROIC ACID
     Indication: Rasmussen encephalitis
  3. VALPROIC ACID [Suspect]
     Active Substance: VALPROIC ACID
     Indication: Status epilepticus
  4. LEVETIRACETAM [Suspect]
     Active Substance: LEVETIRACETAM
     Indication: Partial seizures
     Dosage: 2000 MILLIGRAM, QD
  5. LEVETIRACETAM [Suspect]
     Active Substance: LEVETIRACETAM
     Indication: Rasmussen encephalitis
  6. LEVETIRACETAM [Suspect]
     Active Substance: LEVETIRACETAM
     Indication: Status epilepticus
  7. OXCARBAZEPINE [Suspect]
     Active Substance: OXCARBAZEPINE
     Indication: Partial seizures
     Dosage: 1800 MILLIGRAM, QD
  8. OXCARBAZEPINE [Suspect]
     Active Substance: OXCARBAZEPINE
     Indication: Rasmussen encephalitis
  9. OXCARBAZEPINE [Suspect]
     Active Substance: OXCARBAZEPINE
     Indication: Status epilepticus
  10. LAMOTRIGINE [Suspect]
     Active Substance: LAMOTRIGINE
     Indication: Partial seizures
     Dosage: 200 MILLIGRAM, QD
  11. LAMOTRIGINE [Suspect]
     Active Substance: LAMOTRIGINE
     Indication: Rasmussen encephalitis
  12. LAMOTRIGINE [Suspect]
     Active Substance: LAMOTRIGINE
     Indication: Status epilepticus
  13. LACOSAMIDE [Suspect]
     Active Substance: LACOSAMIDE
     Indication: Partial seizures
     Dosage: 375 MILLIGRAM, QD
  14. LACOSAMIDE [Suspect]
     Active Substance: LACOSAMIDE
     Indication: Rasmussen encephalitis
  15. LACOSAMIDE [Suspect]
     Active Substance: LACOSAMIDE
     Indication: Status epilepticus
  16. AZATHIOPRINE [Suspect]
     Active Substance: AZATHIOPRINE
     Indication: Partial seizures
  17. AZATHIOPRINE [Suspect]
     Active Substance: AZATHIOPRINE
     Indication: Rasmussen encephalitis
  18. AZATHIOPRINE [Suspect]
     Active Substance: AZATHIOPRINE
     Indication: Status epilepticus
  19. METHOTREXATE [Suspect]
     Active Substance: METHOTREXATE
     Indication: Partial seizures
  20. METHOTREXATE [Suspect]
     Active Substance: METHOTREXATE
     Indication: Rasmussen encephalitis
  21. METHOTREXATE [Suspect]
     Active Substance: METHOTREXATE
     Indication: Status epilepticus
  22. MYCOPHENOLATE MOFETIL [Suspect]
     Active Substance: MYCOPHENOLATE MOFETIL
     Indication: Partial seizures
  23. MYCOPHENOLATE MOFETIL [Suspect]
     Active Substance: MYCOPHENOLATE MOFETIL
     Indication: Rasmussen encephalitis
  24. MYCOPHENOLATE MOFETIL [Suspect]
     Active Substance: MYCOPHENOLATE MOFETIL
     Indication: Status epilepticus
  25. CLOBAZAM [Suspect]
     Active Substance: CLOBAZAM
     Indication: Partial seizures
     Dosage: 30 MILLIGRAM, QD
  26. CLOBAZAM [Suspect]
     Active Substance: CLOBAZAM
     Indication: Rasmussen encephalitis
  27. CLOBAZAM [Suspect]
     Active Substance: CLOBAZAM
     Indication: Status epilepticus
  28. PHENYTOIN [Suspect]
     Active Substance: PHENYTOIN
     Indication: Partial seizures
     Dosage: 500 MILLIGRAM, QD
  29. PHENYTOIN [Suspect]
     Active Substance: PHENYTOIN
     Indication: Rasmussen encephalitis
     Dosage: 150 MILLIGRAM, QD
  30. PHENYTOIN [Suspect]
     Active Substance: PHENYTOIN
     Indication: Status epilepticus
  31. CANNABIS SATIVA SUBSP. INDICA TOP [Suspect]
     Active Substance: CANNABIS SATIVA SUBSP. INDICA TOP
     Indication: Partial seizures
  32. CANNABIS SATIVA SUBSP. INDICA TOP [Suspect]
     Active Substance: CANNABIS SATIVA SUBSP. INDICA TOP
     Indication: Rasmussen encephalitis
  33. CANNABIS SATIVA SUBSP. INDICA TOP [Suspect]
     Active Substance: CANNABIS SATIVA SUBSP. INDICA TOP
     Indication: Status epilepticus
  34. PERAMPANEL [Suspect]
     Active Substance: PERAMPANEL
     Indication: Partial seizures
     Dosage: 14 MILLIGRAM, QD
  35. PERAMPANEL [Suspect]
     Active Substance: PERAMPANEL
     Indication: Rasmussen encephalitis
  36. PERAMPANEL [Suspect]
     Active Substance: PERAMPANEL
     Indication: Status epilepticus
  37. BRIVARACETAM [Suspect]
     Active Substance: BRIVARACETAM
     Indication: Partial seizures
     Dosage: 200 MILLIGRAM, QD
  38. BRIVARACETAM [Suspect]
     Active Substance: BRIVARACETAM
     Indication: Rasmussen encephalitis
  39. BRIVARACETAM [Suspect]
     Active Substance: BRIVARACETAM
     Indication: Status epilepticus
  40. PREDNISONE [Suspect]
     Active Substance: PREDNISONE
     Indication: Partial seizures
  41. PREDNISONE [Suspect]
     Active Substance: PREDNISONE
     Indication: Status epilepticus
  42. PREDNISONE [Suspect]
     Active Substance: PREDNISONE
     Indication: Rasmussen encephalitis
  43. HUMAN IMMUNOGLOBULIN G [Suspect]
     Active Substance: HUMAN IMMUNOGLOBULIN G
     Indication: Partial seizures
  44. HUMAN IMMUNOGLOBULIN G [Suspect]
     Active Substance: HUMAN IMMUNOGLOBULIN G
     Indication: Rasmussen encephalitis
  45. HUMAN IMMUNOGLOBULIN G [Suspect]
     Active Substance: HUMAN IMMUNOGLOBULIN G
     Indication: Status epilepticus
  46. ADALIMUMAB [Suspect]
     Active Substance: ADALIMUMAB
     Indication: Partial seizures
  47. ADALIMUMAB [Suspect]
     Active Substance: ADALIMUMAB
     Indication: Rasmussen encephalitis
  48. ADALIMUMAB [Suspect]
     Active Substance: ADALIMUMAB
     Indication: Status epilepticus
  49. RITUXIMAB [Concomitant]
     Active Substance: RITUXIMAB
     Indication: Partial seizures
  50. RITUXIMAB [Concomitant]
     Active Substance: RITUXIMAB
     Indication: Rasmussen encephalitis
  51. RITUXIMAB [Concomitant]
     Active Substance: RITUXIMAB
     Indication: Status epilepticus

REACTIONS (5)
  - Drug ineffective [Unknown]
  - Postictal paralysis [Recovering/Resolving]
  - Ataxia [Unknown]
  - Hyperammonaemia [Unknown]
  - Off label use [Unknown]
